FAERS Safety Report 24923257 (Version 1)
Quarter: 2025Q1

REPORT INFORMATION
  Report Type: Spontaneous
  Country: US (occurrence: US)
  Receive Date: 20250204
  Receipt Date: 20250204
  Transmission Date: 20250409
  Serious: No
  Sender: SANOFI AVENTIS
  Company Number: US-SA-2025SA032061

PATIENT
  Age: 62 Year
  Sex: Female
  Weight: 68.64 kg

DRUGS (19)
  1. DUPIXENT [Suspect]
     Active Substance: DUPILUMAB
     Indication: Asthma
     Dosage: 300 MG, QOW
     Route: 058
     Dates: start: 20240510
  2. LOVASTATIN [Concomitant]
     Active Substance: LOVASTATIN
  3. MELOXICAM [Concomitant]
     Active Substance: MELOXICAM
  4. LATANOPROST [Concomitant]
     Active Substance: LATANOPROST
  5. AZELASTINE HYDROCHLORIDE\FLUTICASONE PROPIONATE [Concomitant]
     Active Substance: AZELASTINE HYDROCHLORIDE\FLUTICASONE PROPIONATE
  6. ANASTROZOLE [Concomitant]
     Active Substance: ANASTROZOLE
  7. CALCIUM CARBONATE [Concomitant]
     Active Substance: CALCIUM CARBONATE
  8. VITAMIN D3 [Concomitant]
     Active Substance: CHOLECALCIFEROL
  9. PREVIDENT [Concomitant]
     Active Substance: SODIUM FLUORIDE
  10. CICLOPIROX [Concomitant]
     Active Substance: CICLOPIROX
  11. EUTHYROX [Concomitant]
     Active Substance: LEVOTHYROXINE SODIUM
  12. ALBUTEROL SULFATE [Concomitant]
     Active Substance: ALBUTEROL SULFATE
  13. MOMETASONE FUROATE [Concomitant]
     Active Substance: MOMETASONE FUROATE
  14. AMMONIUM LACTATE [Concomitant]
     Active Substance: AMMONIUM LACTATE
  15. MONTELUKAST SODIUM [Concomitant]
     Active Substance: MONTELUKAST SODIUM
  16. OMEPRAZOLE [Concomitant]
     Active Substance: OMEPRAZOLE
  17. BREZTRI [Concomitant]
     Active Substance: BUDESONIDE\FORMOTEROL\GLYCOPYRROLATE
  18. OZEMPIC [Concomitant]
     Active Substance: SEMAGLUTIDE
  19. FLUTICASONE PROPIONATE [Concomitant]
     Active Substance: FLUTICASONE PROPIONATE

REACTIONS (1)
  - Asthma [Recovered/Resolved]

NARRATIVE: CASE EVENT DATE: 20250101
